FAERS Safety Report 18826979 (Version 3)
Quarter: 2022Q1

REPORT INFORMATION
  Report Type: Spontaneous
  Country: AU (occurrence: AU)
  Receive Date: 20210202
  Receipt Date: 20220207
  Transmission Date: 20220423
  Serious: Yes (Hospitalization, Other)
  Sender: FDA-Public Use
  Company Number: AU-009507513-2101AUS012422

PATIENT
  Age: 62 Year
  Sex: Male

DRUGS (12)
  1. PEMBROLIZUMAB [Suspect]
     Active Substance: PEMBROLIZUMAB
     Indication: Non-small cell lung cancer stage IV
     Dosage: UNK, Q3W
  2. PEMBROLIZUMAB [Suspect]
     Active Substance: PEMBROLIZUMAB
     Indication: Non-small cell lung cancer metastatic
     Dosage: UNK, Q3W, DELAYED (4TH CYCLE)
  3. PEMBROLIZUMAB [Suspect]
     Active Substance: PEMBROLIZUMAB
     Indication: Lung neoplasm malignant
  4. CARBOPLATIN [Suspect]
     Active Substance: CARBOPLATIN
     Indication: Non-small cell lung cancer stage IV
     Dosage: UNK, Q3W
  5. CARBOPLATIN [Suspect]
     Active Substance: CARBOPLATIN
     Indication: Non-small cell lung cancer metastatic
     Dosage: UNK, Q3W, DELAYED (4TH CYCLE)
  6. CARBOPLATIN [Suspect]
     Active Substance: CARBOPLATIN
     Indication: Lung neoplasm malignant
  7. PEMETREXED DISODIUM [Suspect]
     Active Substance: PEMETREXED DISODIUM
     Indication: Non-small cell lung cancer stage IV
     Dosage: UNK, Q3W
  8. PEMETREXED DISODIUM [Suspect]
     Active Substance: PEMETREXED DISODIUM
     Indication: Non-small cell lung cancer metastatic
     Dosage: UNK, Q3W, DELAYED (4TH CYCLE)
  9. PEMETREXED DISODIUM [Suspect]
     Active Substance: PEMETREXED DISODIUM
     Indication: Lung neoplasm malignant
  10. ASPIRIN [Concomitant]
     Active Substance: ASPIRIN
     Dosage: LOW DOSE
  11. TELMISARTAN [Concomitant]
     Active Substance: TELMISARTAN
     Dosage: UNK
  12. ROSUVASTATIN [Concomitant]
     Active Substance: ROSUVASTATIN
     Dosage: UNK

REACTIONS (3)
  - Small intestinal obstruction [Recovering/Resolving]
  - Enteritis [Recovering/Resolving]
  - Inappropriate schedule of product administration [Unknown]
